FAERS Safety Report 5361646-X (Version None)
Quarter: 2007Q2

REPORT INFORMATION
  Report Type: 
  Country: None (occurrence: None)
  Receive Date: 20070615
  Receipt Date: 20070615
  Transmission Date: 20071010
  Serious: No
  Sender: FDA-Public Use
  Company Number: None

PATIENT
  Sex: Female
  Weight: 45.8 kg

DRUGS (2)
  1. CARBOPLATIN [Suspect]
     Dosage: 781 MG
  2. TAXOL [Suspect]
     Dosage: 234 MG

REACTIONS (2)
  - NEUTROPENIA [None]
  - THROMBOCYTOPENIA [None]
